FAERS Safety Report 4741475-8 (Version None)
Quarter: 2005Q3

REPORT INFORMATION
  Report Type: 
  Country: None (occurrence: None)
  Receive Date: 20050810
  Receipt Date: 20050726
  Transmission Date: 20060218
  Serious: Yes (Death, Hospitalization)
  Sender: FDA-Public Use
  Company Number: ESWYE860527JUL05

PATIENT
  Age: 72 Year
  Sex: Male
  Weight: 60 kg

DRUGS (7)
  1. ENBREL [Suspect]
     Indication: ANKYLOSING SPONDYLITIS
     Route: 058
     Dates: start: 20050329, end: 20050601
  2. METHOTREXATE [Suspect]
     Dates: start: 19980610, end: 20050601
  3. TAVANIC [Concomitant]
     Indication: PNEUMONIA
     Dosage: UNKNOWN
     Dates: start: 20050523, end: 20050601
  4. DACORTIN [Concomitant]
     Indication: ANKYLOSING SPONDYLITIS
     Route: 048
  5. NIFEDIPINE [Concomitant]
     Indication: ESSENTIAL HYPERTENSION
     Dosage: 120 MG EVERY
  6. ACFOL [Concomitant]
     Indication: PROPHYLAXIS
     Dosage: UNKNOWN
     Route: 048
     Dates: end: 20050601
  7. OMEPRAZOLE [Concomitant]
     Route: 048

REACTIONS (3)
  - HEPATOMEGALY [None]
  - PANCYTOPENIA [None]
  - PNEUMONIA [None]
